FAERS Safety Report 20695527 (Version 1)
Quarter: 2022Q2

REPORT INFORMATION
  Report Type: Spontaneous
  Country: US (occurrence: US)
  Receive Date: 20220411
  Receipt Date: 20220411
  Transmission Date: 20220721
  Serious: No
  Sender: FDA-Public Use
  Company Number: US-PFIZER INC-202101065110

PATIENT
  Age: 2 Year
  Sex: Female

DRUGS (2)
  1. EUCRISA [Suspect]
     Active Substance: CRISABOROLE
     Indication: Dermatitis atopic
     Dosage: 2X/DAY (APPLY TO AFFECTED AREA ON BODY)
  2. MOMETASONE [Concomitant]
     Active Substance: MOMETASONE
     Dosage: UNK, 2X/DAY FOR 1 WEEK

REACTIONS (1)
  - Drug ineffective [Unknown]
